FAERS Safety Report 5513239-9 (Version None)
Quarter: 2007Q4

REPORT INFORMATION
  Report Type: 
  Country: None (occurrence: None)
  Receive Date: 20071112
  Receipt Date: 20071108
  Transmission Date: 20080405
  Serious: Yes (Hospitalization)
  Sender: FDA-Public Use
  Company Number: FR-ELI_LILLY_AND_COMPANY-FR200708006662

PATIENT
  Sex: Male

DRUGS (2)
  1. PROZAC [Suspect]
     Indication: DEPRESSION
     Dosage: 20 MG, EACH MORNING
     Route: 048
     Dates: start: 20070719, end: 20070731
  2. LOPRESSOR [Concomitant]
     Indication: HYPERTENSION
     Dosage: 200 MG, EACH MORNING
     Route: 048

REACTIONS (5)
  - BLOOD CREATININE DECREASED [None]
  - GENERAL PHYSICAL HEALTH DETERIORATION [None]
  - HALLUCINATION, VISUAL [None]
  - HYPOCHLORAEMIA [None]
  - HYPONATRAEMIA [None]
